FAERS Safety Report 7925927-5 (Version None)
Quarter: 2011Q4

REPORT INFORMATION
  Report Type: 
  Country: None (occurrence: None)
  Receive Date: 20111118
  Receipt Date: 20110414
  Transmission Date: 20120403
  Serious: No
  Sender: FDA-Public Use
  Company Number: US-AMGEN-USASP2011019891

PATIENT
  Age: 40 Year
  Sex: Female
  Weight: 69.841 kg

DRUGS (10)
  1. FENTANYL [Concomitant]
  2. PAROXETINE HCL [Concomitant]
     Dosage: 20 MG, UNK
  3. MULTIVITAMIN                       /00097801/ [Concomitant]
  4. METHOTREXATE [Concomitant]
     Dosage: 2.5 MG, UNK
  5. FOLIC ACID [Concomitant]
     Dosage: 1 MG, UNK
  6. BUPROPION HCL [Concomitant]
     Dosage: 100 MG, UNK
  7. ENBREL [Suspect]
     Indication: PRODUCT USED FOR UNKNOWN INDICATION
     Dosage: 50 MG, QWK
     Route: 058
  8. DIAZEPAM [Concomitant]
     Dosage: 5 MG, UNK
  9. TRAZODONE HCL [Concomitant]
     Dosage: 50 MG, UNK
  10. OXYCODONE HCL [Concomitant]
     Dosage: 5 MG, UNK

REACTIONS (3)
  - INJECTION SITE PRURITUS [None]
  - INJECTION SITE ERYTHEMA [None]
  - INJECTION SITE SWELLING [None]
